FAERS Safety Report 15530758 (Version 1)
Quarter: 2018Q4

REPORT INFORMATION
  Report Type: Spontaneous
  Country: FI (occurrence: FI)
  Receive Date: 20181018
  Receipt Date: 20181018
  Transmission Date: 20190205
  Serious: Yes (Life-Threatening)
  Sender: FDA-Public Use
  Company Number: FI-009507513-1810FIN006452

PATIENT
  Age: 71 Year
  Sex: Male

DRUGS (13)
  1. BRIDION [Suspect]
     Active Substance: SUGAMMADEX
     Indication: NEUROMUSCULAR BLOCKADE REVERSAL
     Dosage: 200,MG,X1
     Route: 042
     Dates: start: 20180906, end: 20180906
  2. BICALUTAMIDE. [Concomitant]
     Active Substance: BICALUTAMIDE
  3. CIPROXIN (CIPROFLOXACIN HYDROCHLORIDE) [Concomitant]
  4. PROPOFOL LIPURO [Concomitant]
     Active Substance: PROPOFOL
     Route: 042
     Dates: start: 20180906
  5. ATORVASTATIN CALCIUM. [Concomitant]
     Active Substance: ATORVASTATIN CALCIUM
  6. TAMSUMIN [Concomitant]
     Active Substance: TAMSULOSIN
  7. FENTANYL. [Concomitant]
     Active Substance: FENTANYL
     Route: 042
     Dates: start: 20180906
  8. FURESIS [Concomitant]
     Active Substance: FUROSEMIDE
  9. DIGOXIN. [Concomitant]
     Active Substance: DIGOXIN
  10. ESMERON [Concomitant]
     Active Substance: ROCURONIUM BROMIDE
     Route: 042
     Dates: start: 20180906
  11. ATENOLOL SANDOZ [Concomitant]
     Active Substance: ATENOLOL
  12. ELIQUIS [Concomitant]
     Active Substance: APIXABAN
  13. ORADEXON (DEXAMETHASONE SODIUM PHOSPHATE) [Concomitant]
     Route: 042
     Dates: start: 20180906

REACTIONS (4)
  - Haemodynamic instability [Recovered/Resolved]
  - Hypotension [Recovered/Resolved]
  - Hypoventilation [Recovered/Resolved]
  - Anaphylactic reaction [Recovered/Resolved]

NARRATIVE: CASE EVENT DATE: 20180906
